FAERS Safety Report 25210472 (Version 1)
Quarter: 2025Q2

REPORT INFORMATION
  Report Type: Report from Study
  Country: IT (occurrence: IT)
  Receive Date: 20250417
  Receipt Date: 20250417
  Transmission Date: 20250716
  Serious: Yes (Other)
  Sender: PFIZER
  Company Number: None

PATIENT
  Age: 85 Year
  Sex: Male

DRUGS (2)
  1. BRAFTOVI [Suspect]
     Active Substance: ENCORAFENIB
     Indication: Malignant melanoma
     Dosage: 4 CAPSULES DAILY, 75 MG EACH BRAFTOVI*42CPS 75MG
     Route: 048
     Dates: start: 202410
  2. MEKTOVI [Suspect]
     Active Substance: BINIMETINIB
     Indication: Malignant melanoma
     Dosage: 45 MG BID MEKTOVI*84CPR EACH 15MG
     Route: 048
     Dates: start: 202410

REACTIONS (2)
  - Hypercreatinaemia [Recovering/Resolving]
  - Hypertransaminasaemia [Recovered/Resolved]

NARRATIVE: CASE EVENT DATE: 20241001
